FAERS Safety Report 15584777 (Version 1)
Quarter: 2018Q4

REPORT INFORMATION
  Report Type: Spontaneous
  Country: ES (occurrence: ES)
  Receive Date: 20181102
  Receipt Date: 20181102
  Transmission Date: 20190205
  Serious: Yes (Hospitalization)
  Sender: FDA-Public Use
  Company Number: ES-PFIZER INC-2018446459

PATIENT
  Age: 72 Year
  Sex: Male

DRUGS (4)
  1. MOTILIUM [Interacting]
     Active Substance: DOMPERIDONE
     Dosage: 3X/DAY (DOSE IS UNKNOWN, 3 TIMES A DAY)
     Route: 048
     Dates: start: 201801
  2. ADIRO [Concomitant]
     Active Substance: ASPIRIN
     Dosage: 100 MG, 1X/DAY
     Route: 048
     Dates: start: 201808
  3. ALPRAZOLAM. [Suspect]
     Active Substance: ALPRAZOLAM
     Dosage: 1 G, 3X/DAY
     Route: 048
     Dates: start: 201801
  4. SINOGAN [LEVOMEPROMAZINE HYDROCHLORIDE] [Interacting]
     Active Substance: LEVOMEPROMAZINE HYDROCHLORIDE
     Dosage: 40 GTT, 1X/DAY
     Route: 048
     Dates: start: 201808

REACTIONS (3)
  - Sedation complication [Recovered/Resolved]
  - Drug interaction [Unknown]
  - Gait disturbance [Recovered/Resolved]

NARRATIVE: CASE EVENT DATE: 201808
